FAERS Safety Report 6445676-2 (Version None)
Quarter: 2009Q4

REPORT INFORMATION
  Report Type: 
  Country: None (occurrence: None)
  Receive Date: 20091118
  Receipt Date: 20091118
  Transmission Date: 20100525
  Serious: Yes (Other)
  Sender: FDA-Public Use
  Company Number: None

PATIENT
  Sex: Female
  Weight: 66.2252 kg

DRUGS (6)
  1. IMATINIB MESYLATE 400 MG NOVARTIS [Suspect]
     Indication: CHRONIC MYELOID LEUKAEMIA
     Dosage: 400 MG DAILY PO
     Route: 048
     Dates: start: 20090929, end: 20091112
  2. CALCIUM + VITAMIN D HYDROCHLOROTHIAZIDE [Concomitant]
  3. IBUPROFEN [Concomitant]
  4. MULTI-VITAMINS [Concomitant]
  5. PERCOCET` [Concomitant]
  6. VALTREX [Concomitant]

REACTIONS (6)
  - ACTIVITIES OF DAILY LIVING IMPAIRED [None]
  - HYPOAESTHESIA FACIAL [None]
  - MUSCULAR WEAKNESS [None]
  - OEDEMA PERIPHERAL [None]
  - PARAESTHESIA [None]
  - PERIORBITAL OEDEMA [None]
